FAERS Safety Report 5195550-7 (Version None)
Quarter: 2006Q4

REPORT INFORMATION
  Report Type: 
  Country: None (occurrence: None)
  Receive Date: 20061222
  Receipt Date: 20061222
  Transmission Date: 20070319
  Serious: No
  Sender: FDA-Public Use
  Company Number: None

PATIENT
  Age: 83 Year
  Sex: Male
  Weight: 83 kg

DRUGS (2)
  1. ENOXAPARIN SODIUM [Suspect]
     Indication: ATRIAL FIBRILLATION
     Dosage: 80MG BID SC
     Route: 058
     Dates: start: 20060728, end: 20060731
  2. ENOXAPARIN SODIUM [Suspect]
     Indication: THROMBOSIS PROPHYLAXIS
     Dosage: 80MG BID SC
     Route: 058
     Dates: start: 20060728, end: 20060731

REACTIONS (2)
  - BLOODY DISCHARGE [None]
  - EPISTAXIS [None]
